FAERS Safety Report 7908960-9 (Version None)
Quarter: 2011Q4

REPORT INFORMATION
  Report Type: 
  Country: None (occurrence: None)
  Receive Date: 20111111
  Receipt Date: 20111028
  Transmission Date: 20120403
  Serious: Yes (Death, Other)
  Sender: FDA-Public Use
  Company Number: FR-CUBIST-2011S1000738

PATIENT
  Age: 60 Year
  Sex: Male
  Weight: 85 kg

DRUGS (6)
  1. PIPERACILLIN AND TAZOBACTAM [Concomitant]
     Indication: PRODUCT USED FOR UNKNOWN INDICATION
     Dosage: DOSE UNIT:U UNKNOWN
     Route: 065
  2. CUBICIN [Suspect]
     Route: 065
  3. RIFAMPICIN [Concomitant]
     Indication: PRODUCT USED FOR UNKNOWN INDICATION
     Dosage: DOSE UNIT:U UNKNOWN
     Route: 065
  4. GENTAMICIN [Concomitant]
     Indication: PRODUCT USED FOR UNKNOWN INDICATION
     Dosage: DOSE UNIT:U UNKNOWN
     Route: 065
  5. IMIPENEM [Concomitant]
     Indication: PRODUCT USED FOR UNKNOWN INDICATION
     Dosage: DOSE UNIT:U UNKNOWN
     Route: 065
  6. CUBICIN [Suspect]
     Indication: ENDOCARDITIS STAPHYLOCOCCAL
     Route: 065

REACTIONS (8)
  - BODY TEMPERATURE FLUCTUATION [None]
  - LACTIC ACIDOSIS [None]
  - HEART RATE INCREASED [None]
  - BLOOD CREATININE INCREASED [None]
  - DEATH [None]
  - WHITE BLOOD CELL COUNT ABNORMAL [None]
  - RESPIRATORY RATE INCREASED [None]
  - HYPOTENSION [None]
